FAERS Safety Report 10228546 (Version 1)
Quarter: 2014Q2

REPORT INFORMATION
  Report Type: Spontaneous
  Country: GB (occurrence: GB)
  Receive Date: 20140610
  Receipt Date: 20140610
  Transmission Date: 20141212
  Serious: Yes (Life-Threatening, Other)
  Sender: FDA-Public Use
  Company Number: GB-BRISTOL-MYERS SQUIBB COMPANY-20936043

PATIENT
  Age: 30 Year
  Sex: Female
  Weight: 160 kg

DRUGS (3)
  1. ARIPIPRAZOLE IM DEPOT [Suspect]
     Route: 030
  2. VENLAFAXINE HCL [Suspect]
     Route: 048
  3. FLUPENTHIXOL [Concomitant]
     Route: 030

REACTIONS (6)
  - Depression [Recovered/Resolved]
  - Drug level below therapeutic [Recovered/Resolved]
  - Psychotic disorder [Recovered/Resolved]
  - Suicidal ideation [Recovered/Resolved]
  - Disease recurrence [None]
  - Post procedural complication [None]
